FAERS Safety Report 24036370 (Version 2)
Quarter: 2024Q3

REPORT INFORMATION
  Report Type: Report from Study
  Country: CA (occurrence: CA)
  Receive Date: 20240701
  Receipt Date: 20240719
  Transmission Date: 20241017
  Serious: Yes (Hospitalization)
  Sender: OTSUKA
  Company Number: CA-OTSUKA-2024_018150

PATIENT
  Sex: Female

DRUGS (1)
  1. ARIPIPRAZOLE [Suspect]
     Active Substance: ARIPIPRAZOLE
     Indication: Product used for unknown indication
     Dosage: 400 MG EVERY 3 WEEKS
     Route: 030

REACTIONS (2)
  - Mental disorder [Unknown]
  - Inappropriate schedule of product administration [Unknown]
